FAERS Safety Report 10081890 (Version 1)
Quarter: 2014Q2

REPORT INFORMATION
  Report Type: Spontaneous
  Country: US (occurrence: US)
  Receive Date: 20140416
  Receipt Date: 20140416
  Transmission Date: 20141212
  Serious: Yes (Other)
  Sender: FDA-Public Use
  Company Number: US-BAYER-2014-053166

PATIENT
  Age: 69 Year
  Sex: Female
  Weight: 63.49 kg

DRUGS (4)
  1. ALEVE CAPLET [Suspect]
     Indication: ARTHRITIS
     Dosage: UNK UNK, PRN
     Route: 048
     Dates: start: 2007, end: 2007
  2. ALEVE CAPLET [Suspect]
     Indication: ARTHRITIS
     Dosage: 1 DF, PRN
     Route: 048
     Dates: start: 20140403, end: 20140403
  3. OMEGA 3 [Concomitant]
  4. CITRACAL [Concomitant]

REACTIONS (7)
  - Haemorrhage [Recovered/Resolved]
  - Eye swelling [Recovered/Resolved]
  - Ocular hyperaemia [Recovered/Resolved]
  - Eye pruritus [Recovered/Resolved]
  - Expired product administered [None]
  - Blood pressure increased [Recovered/Resolved]
  - Blood disorder [Recovered/Resolved]
